FAERS Safety Report 23848374 (Version 1)
Quarter: 2024Q2

REPORT INFORMATION
  Report Type: Spontaneous
  Country: US (occurrence: None)
  Receive Date: 20240510
  Receipt Date: 20240510
  Transmission Date: 20240716
  Serious: Yes (Hospitalization)
  Sender: FDA-Public Use
  Company Number: None

PATIENT
  Age: 85 Year
  Sex: Female

DRUGS (2)
  1. TAFINLAR [Suspect]
     Active Substance: DABRAFENIB MESYLATE
     Indication: Neoplasm malignant
     Dosage: 2 CAPSULES BID ORAL?
     Route: 048
     Dates: start: 20220801
  2. MEKINIST [Suspect]
     Active Substance: TRAMETINIB DIMETHYL SULFOXIDE
     Indication: Neoplasm malignant
     Dosage: 1 MG DAILY ORAL?
     Route: 048
     Dates: start: 20220801

REACTIONS (3)
  - Renal stone removal [None]
  - Visual impairment [None]
  - Halo vision [None]

NARRATIVE: CASE EVENT DATE: 20240429
